FAERS Safety Report 7649106-4 (Version None)
Quarter: 2011Q3

REPORT INFORMATION
  Report Type: 
  Country: None (occurrence: None)
  Receive Date: 20110726
  Receipt Date: 20110715
  Transmission Date: 20111222
  Serious: Yes (Hospitalization, Other)
  Sender: FDA-Public Use
  Company Number: DKLU1070824

PATIENT
  Age: 9 Month
  Sex: Male

DRUGS (4)
  1. DEPAKOTE [Concomitant]
  2. SABRIL [Suspect]
     Indication: INFANTILE SPASMS
     Dosage: SEE IMAGE
     Route: 048
     Dates: end: 20110501
  3. SABRIL [Suspect]
     Indication: INFANTILE SPASMS
     Dosage: SEE IMAGE
     Route: 048
     Dates: start: 20110501
  4. SABRIL [Suspect]
     Indication: INFANTILE SPASMS
     Dosage: SEE IMAGE
     Route: 048
     Dates: start: 20110501, end: 20110101

REACTIONS (4)
  - INFANTILE SPASMS [None]
  - GASTROINTESTINAL TUBE INSERTION [None]
  - SOMNOLENCE [None]
  - OXYGEN SATURATION DECREASED [None]
